FAERS Safety Report 8251071-6 (Version None)
Quarter: 2012Q2

REPORT INFORMATION
  Report Type: 
  Country: None (occurrence: None)
  Receive Date: 20120402
  Receipt Date: 20120323
  Transmission Date: 20120825
  Serious: Yes (Hospitalization)
  Sender: FDA-Public Use
  Company Number: FR-BRISTOL-MYERS SQUIBB COMPANY-16464992

PATIENT
  Age: 56 Year
  Sex: Female

DRUGS (6)
  1. HYDREA [Interacting]
     Indication: BILE DUCT CANCER
     Dosage: ALSO TAKEN 1G DAILY 3RD COURSE STARTED ON 14MAR12
     Route: 048
     Dates: start: 20100510, end: 20120202
  2. GEMZAR [Interacting]
     Indication: BILE DUCT CANCER
     Dosage: GEMZAR 1000 MG,POWDER FOR SOLUTION POUR INFU(GEMCITABINE) 1000 MG/M2 D1 01FEB2012 AND D8 09FEB2012
     Dates: start: 20120201
  3. CISPLATIN [Interacting]
     Dosage: 25 MG/M2 ON D1 (01-FEB-2012)
     Dates: start: 20120201
  4. GEMZAR [Interacting]
     Dosage: 3RD COURSE STARTED ON 14MAR12
     Dates: start: 20120201
  5. HYDREA [Suspect]
     Indication: ESSENTIAL THROMBOCYTHAEMIA
     Dosage: ALSO TAKEN 1G DAILY 3RD COURSE STARTED ON 14MAR12
     Route: 048
     Dates: start: 20100510, end: 20120202
  6. CISPLATIN [Interacting]
     Indication: BILE DUCT CANCER
     Dosage: D8 (09-FEB-2012) OF FIRST COURSE
     Dates: start: 20100209

REACTIONS (2)
  - DRUG INTERACTION [None]
  - PANCYTOPENIA [None]
